FAERS Safety Report 7371323-1 (Version None)
Quarter: 2011Q1

REPORT INFORMATION
  Report Type: 
  Country: None (occurrence: None)
  Receive Date: 20110318
  Receipt Date: 20110318
  Transmission Date: 20110831
  Serious: Yes (Hospitalization)
  Sender: FDA-Public Use
  Company Number: None

PATIENT
  Sex: Female
  Weight: 75.5 kg

DRUGS (2)
  1. CARBOPLATIN [Suspect]
     Dosage: 517 MG
  2. TAXOL [Suspect]
     Dosage: 426 MG

REACTIONS (1)
  - DIARRHOEA [None]
